FAERS Safety Report 20215090 (Version 5)
Quarter: 2022Q1

REPORT INFORMATION
  Report Type: Spontaneous
  Country: AR (occurrence: AR)
  Receive Date: 20211222
  Receipt Date: 20220120
  Transmission Date: 20220423
  Serious: No
  Sender: FDA-Public Use
  Company Number: AR-JNJFOC-20211202801

PATIENT
  Age: 62 Year
  Sex: Female

DRUGS (12)
  1. FENTANYL [Suspect]
     Active Substance: FENTANYL
     Indication: Pain
     Dosage: 50.00 MCG/HR
     Route: 062
  2. FENTANYL [Suspect]
     Active Substance: FENTANYL
  3. FENTANYL [Suspect]
     Active Substance: FENTANYL
  4. FENTANYL [Suspect]
     Active Substance: FENTANYL
  5. FENTANYL [Suspect]
     Active Substance: FENTANYL
  6. FENTANYL [Suspect]
     Active Substance: FENTANYL
  7. FENTANYL [Suspect]
     Active Substance: FENTANYL
     Indication: Pain
     Dosage: 50.00 MCG/HR
     Route: 062
  8. FENTANYL [Suspect]
     Active Substance: FENTANYL
  9. FENTANYL [Suspect]
     Active Substance: FENTANYL
  10. FENTANYL [Suspect]
     Active Substance: FENTANYL
  11. FENTANYL [Suspect]
     Active Substance: FENTANYL
  12. FENTANYL [Suspect]
     Active Substance: FENTANYL

REACTIONS (2)
  - Pain [Unknown]
  - Product adhesion issue [Unknown]

NARRATIVE: CASE EVENT DATE: 20211128
